FAERS Safety Report 5219105-0 (Version None)
Quarter: 2007Q1

REPORT INFORMATION
  Report Type: 
  Country: None (occurrence: None)
  Receive Date: 20070124
  Receipt Date: 20070124
  Transmission Date: 20070707
  Serious: Yes (Life-Threatening)
  Sender: FDA-Public Use
  Company Number: None

PATIENT
  Age: 43 Year
  Sex: Male
  Weight: 68.0396 kg

DRUGS (1)
  1. ELIDEL [Suspect]
     Indication: ECZEMA
     Dosage: SPARINGLY ON AFFECTED AREAS  2 X DAILY  APPROX 3-4 MONTHS IN 2004
     Dates: start: 20040101

REACTIONS (1)
  - NON-HODGKIN'S LYMPHOMA [None]
